FAERS Safety Report 22125769 (Version 2)
Quarter: 2023Q2

REPORT INFORMATION
  Report Type: Spontaneous
  Country: US (occurrence: US)
  Receive Date: 20230322
  Receipt Date: 20230510
  Transmission Date: 20230722
  Serious: No
  Sender: FDA-Public Use
  Company Number: US-PFIZER INC-PV202300053103

PATIENT
  Age: 9 Month
  Sex: Male
  Weight: 6.86 kg

DRUGS (1)
  1. XALKORI [Suspect]
     Active Substance: CRIZOTINIB
     Dosage: 4 M/S, 2X/DAY
     Route: 048
     Dates: start: 20230307

REACTIONS (3)
  - Decreased appetite [Not Recovered/Not Resolved]
  - Infantile vomiting [Recovered/Resolved]
  - Off label use [Unknown]

NARRATIVE: CASE EVENT DATE: 20230301
